FAERS Safety Report 7834242-X (Version None)
Quarter: 2011Q4

REPORT INFORMATION
  Report Type: 
  Country: None (occurrence: None)
  Receive Date: 20111024
  Receipt Date: 20111020
  Transmission Date: 20120403
  Serious: Yes (Death)
  Sender: FDA-Public Use
  Company Number: PHEH2011US03120

PATIENT
  Sex: Female

DRUGS (2)
  1. RECLAST [Suspect]
     Dates: start: 20090901
  2. RECLAST [Suspect]
     Route: 042
     Dates: start: 20100924

REACTIONS (1)
  - DEATH [None]
